FAERS Safety Report 5727666-8 (Version None)
Quarter: 2008Q2

REPORT INFORMATION
  Report Type: 
  Country: None (occurrence: None)
  Receive Date: 20080505
  Receipt Date: 20080424
  Transmission Date: 20081010
  Serious: Yes (Hospitalization)
  Sender: FDA-Public Use
  Company Number: B0511796A

PATIENT
  Age: 87 Year
  Sex: Female
  Weight: 47 kg

DRUGS (6)
  1. VALTREX [Suspect]
     Indication: HERPES ZOSTER
     Dosage: 1000MG THREE TIMES PER DAY
     Route: 048
     Dates: start: 20070907, end: 20070908
  2. LENDORMIN [Suspect]
     Indication: SLEEP DISORDER
     Dosage: .25MG PER DAY
     Route: 048
  3. ASPIRIN [Concomitant]
     Indication: ACUTE MYOCARDIAL INFARCTION
     Route: 048
  4. ARTIST [Concomitant]
     Indication: ACUTE MYOCARDIAL INFARCTION
  5. BLOPRESS [Concomitant]
     Indication: ACUTE MYOCARDIAL INFARCTION
  6. LIPITOR [Concomitant]
     Indication: ACUTE MYOCARDIAL INFARCTION

REACTIONS (15)
  - ALTERED STATE OF CONSCIOUSNESS [None]
  - ANAEMIA [None]
  - BLOOD CREATININE INCREASED [None]
  - BLOOD UREA INCREASED [None]
  - DEHYDRATION [None]
  - DYSLALIA [None]
  - ENCEPHALOPATHY [None]
  - HYPONATRAEMIA [None]
  - MUSCULAR WEAKNESS [None]
  - NAUSEA [None]
  - NEUROLOGICAL SYMPTOM [None]
  - RASH [None]
  - RENAL FAILURE [None]
  - SOMNOLENCE [None]
  - VOMITING [None]
